FAERS Safety Report 9115619 (Version 1)
Quarter: 2013Q1

REPORT INFORMATION
  Report Type: Spontaneous
  Country: US (occurrence: US)
  Receive Date: 20130225
  Receipt Date: 20130225
  Transmission Date: 20140127
  Serious: No
  Sender: FDA-Public Use
  Company Number: US-BRISTOL-MYERS SQUIBB COMPANY-16440901

PATIENT
  Age: 65 Year
  Sex: Female
  Weight: 95.24 kg

DRUGS (6)
  1. KENALOG-10 INJ [Suspect]
     Indication: ARTHRITIS
     Dosage: INJECTED THREE TIMES WITH KENALOG 10 ONCE INTO EACH THUMB AND THE RING FINGER ON HER RIGHT HAND
     Dates: start: 20120130
  2. KENALOG-10 INJ [Suspect]
     Indication: TRIGGER FINGER
     Dosage: INJECTED THREE TIMES WITH KENALOG 10 ONCE INTO EACH THUMB AND THE RING FINGER ON HER RIGHT HAND
     Dates: start: 20120130
  3. BABY ASPIRIN [Suspect]
  4. VOLTAREN [Concomitant]
     Route: 061
  5. SYNTHROID [Concomitant]
  6. MULTIVITAMIN [Concomitant]

REACTIONS (2)
  - Vaginal haemorrhage [Unknown]
  - Influenza like illness [Unknown]
